FAERS Safety Report 8126577-0 (Version None)
Quarter: 2012Q1

REPORT INFORMATION
  Report Type: 
  Country: None (occurrence: None)
  Receive Date: 20120210
  Receipt Date: 20120130
  Transmission Date: 20120608
  Serious: Yes (Life-Threatening, Hospitalization)
  Sender: FDA-Public Use
  Company Number: FR-BIOGENIDEC-2011BI045480

PATIENT
  Age: 51 Year
  Sex: Female
  Weight: 120 kg

DRUGS (1)
  1. TYSABRI [Suspect]
     Indication: MULTIPLE SCLEROSIS
     Route: 042
     Dates: start: 20110120, end: 20111124

REACTIONS (2)
  - ANAPHYLACTIC SHOCK [None]
  - MULTIPLE SCLEROSIS RELAPSE [None]
